FAERS Safety Report 7394244-7 (Version None)
Quarter: 2011Q2

REPORT INFORMATION
  Report Type: 
  Country: None (occurrence: None)
  Receive Date: 20110405
  Receipt Date: 20110331
  Transmission Date: 20111010
  Serious: Yes (Hospitalization)
  Sender: FDA-Public Use
  Company Number: ES-B.I. PHARMACEUTICALS,INC./RIDGEFIELD-2011-ES-00083ES

PATIENT
  Age: 93 Year
  Sex: Female

DRUGS (4)
  1. MANIDON RETARD [Concomitant]
     Indication: ATRIAL FIBRILLATION
  2. PRADAXA [Suspect]
     Indication: ATRIAL FIBRILLATION
     Route: 048
     Dates: start: 20110226, end: 20110228
  3. SEGURIL [Concomitant]
     Indication: ATRIAL FIBRILLATION
  4. TENORMIN [Concomitant]
     Indication: ATRIAL FIBRILLATION
     Route: 048

REACTIONS (4)
  - RENAL FAILURE [None]
  - CYTOLYTIC HEPATITIS [None]
  - CHOLECYSTITIS ACUTE [None]
  - SHOCK [None]
